FAERS Safety Report 16082094 (Version 2)
Quarter: 2019Q1

REPORT INFORMATION
  Report Type: Report from Study
  Country: CA (occurrence: CA)
  Receive Date: 20190317
  Receipt Date: 20190322
  Transmission Date: 20190418
  Serious: Yes (Other)
  Sender: FDA-Public Use
  Company Number: CA-BIOGEN-2019BI00710716

PATIENT
  Age: 68 Year
  Sex: Male

DRUGS (2)
  1. AVONEX [Suspect]
     Active Substance: INTERFERON BETA-1A
     Indication: MULTIPLE SCLEROSIS
     Dosage: TITRATION DOSE
     Route: 030
     Dates: start: 20190305
  2. AVONEX [Suspect]
     Active Substance: INTERFERON BETA-1A
     Route: 030
     Dates: start: 20190306, end: 20190315

REACTIONS (5)
  - Gait inability [Recovered/Resolved]
  - Dementia Alzheimer^s type [Unknown]
  - Multiple sclerosis relapse [Unknown]
  - Hypotonia [Recovered/Resolved]
  - Influenza like illness [Recovered/Resolved]

NARRATIVE: CASE EVENT DATE: 20190306
